FAERS Safety Report 9794183 (Version 2)
Quarter: 2014Q1

REPORT INFORMATION
  Report Type: Spontaneous
  Country: US (occurrence: US)
  Receive Date: 20140102
  Receipt Date: 20140102
  Transmission Date: 20141002
  Serious: No
  Sender: FDA-Public Use
  Company Number: US-AMGEN-USASP2013077496

PATIENT
  Age: 52 Year
  Sex: Female

DRUGS (5)
  1. ENBREL [Suspect]
     Indication: RHEUMATOID ARTHRITIS
     Dosage: 50 MG, QWK
     Route: 058
     Dates: start: 20131001
  2. METHOTREXATE [Suspect]
     Indication: PRODUCT USED FOR UNKNOWN INDICATION
     Dosage: 2.5 MG, UNK
     Route: 065
  3. FOLIC ACID [Concomitant]
     Dosage: UNK
  4. VITAMIN D3 [Concomitant]
     Dosage: 1000 UNK, UNK
  5. MELOXICAM [Concomitant]
     Dosage: 7.5 MG, UNK

REACTIONS (11)
  - Laceration [Unknown]
  - Fatigue [Unknown]
  - Disturbance in attention [Not Recovered/Not Resolved]
  - Memory impairment [Not Recovered/Not Resolved]
  - Hypersomnia [Not Recovered/Not Resolved]
  - Anxiety [Not Recovered/Not Resolved]
  - Oedema mouth [Recovered/Resolved]
  - Stomatitis [Recovered/Resolved]
  - Skin exfoliation [Recovered/Resolved]
  - Gingival inflammation [Recovered/Resolved]
  - Feeling abnormal [Unknown]
